FAERS Safety Report 19877941 (Version 8)
Quarter: 2021Q4

REPORT INFORMATION
  Report Type: Report from Study
  Country: US (occurrence: None)
  Receive Date: 20210923
  Receipt Date: 20211213
  Transmission Date: 20220303
  Serious: Yes (Hospitalization)
  Sender: FDA-Public Use
  Company Number: US-EISAI MEDICAL RESEARCH-EC-2021-099914

PATIENT
  Age: 63 Year
  Sex: Male
  Weight: 129.7 kg

DRUGS (12)
  1. LENVATINIB [Suspect]
     Active Substance: LENVATINIB
     Indication: Renal cell carcinoma
     Dosage: STARTING DOSE AT 20 MG, FLUCTUATED DOSAGE
     Route: 048
     Dates: start: 20210610, end: 20210901
  2. LENVATINIB [Suspect]
     Active Substance: LENVATINIB
     Route: 048
     Dates: start: 20210902
  3. PEMBROLIZUMAB [Suspect]
     Active Substance: PEMBROLIZUMAB
     Indication: Renal cell carcinoma
     Route: 041
     Dates: start: 20210610, end: 20210722
  4. PEMBROLIZUMAB [Suspect]
     Active Substance: PEMBROLIZUMAB
     Route: 041
     Dates: start: 20210902, end: 20210902
  5. PEMBROLIZUMAB [Suspect]
     Active Substance: PEMBROLIZUMAB
     Route: 041
     Dates: start: 20211014
  6. ALLOPURINOL [Concomitant]
     Active Substance: ALLOPURINOL
     Dates: start: 201901, end: 20190916
  7. ASPIRIN [Concomitant]
     Active Substance: ASPIRIN
     Dates: start: 20201123, end: 20210916
  8. PERINDOPRIL [Concomitant]
     Active Substance: PERINDOPRIL
     Dates: start: 20210602, end: 20210916
  9. PANADOL [Concomitant]
     Active Substance: ACETAMINOPHEN
     Dates: start: 20210611
  10. AMLODIPINE [Concomitant]
     Active Substance: AMLODIPINE BESYLATE
     Dates: start: 20210622, end: 20210916
  11. METOPROLOL [Concomitant]
     Active Substance: METOPROLOL
     Dates: start: 20210803, end: 20210916
  12. TEMAZEPAM [Concomitant]
     Active Substance: TEMAZEPAM
     Dates: start: 20210902, end: 20210919

REACTIONS (1)
  - Melaena [Recovered/Resolved]

NARRATIVE: CASE EVENT DATE: 20210911
